FAERS Safety Report 20492729 (Version 1)
Quarter: 2022Q1

REPORT INFORMATION
  Report Type: Spontaneous
  Country: US (occurrence: US)
  Receive Date: 20220219
  Receipt Date: 20220219
  Transmission Date: 20220423
  Serious: Yes (Life-Threatening, Hospitalization, Other)
  Sender: FDA-Public Use
  Company Number: US-MACLEODS PHARMACEUTICALS US LTD-MAC2022034413

PATIENT

DRUGS (2)
  1. OLANZAPINE [Suspect]
     Active Substance: OLANZAPINE
     Indication: Schizoaffective disorder
     Dosage: 10 MILLIGRAM (QHS)
     Route: 065
  2. VALPROIC ACID [Concomitant]
     Active Substance: VALPROIC ACID
     Indication: Schizoaffective disorder
     Dosage: UNK
     Route: 065

REACTIONS (5)
  - Diabetic ketoacidosis [Unknown]
  - Diabetes mellitus [Unknown]
  - Oral candidiasis [Unknown]
  - Vulvovaginal candidiasis [Unknown]
  - Weight increased [Unknown]
